FAERS Safety Report 9769270 (Version 1)
Quarter: 2013Q4

REPORT INFORMATION
  Report Type: Spontaneous
  Country: AU (occurrence: None)
  Receive Date: 20131216
  Receipt Date: 20131216
  Transmission Date: 20140711
  Serious: Yes (Other)
  Sender: FDA-Public Use
  Company Number: 2013000331

PATIENT
  Age: 67 Year
  Sex: Female

DRUGS (3)
  1. ACEON [Suspect]
     Indication: PRODUCT USED FOR UNKNOWN INDICATION
  2. LITHIUM CARBONATE (LITHIUM CARBONATE) [Concomitant]
  3. QUETIAPINE (QUETIAPINE) [Concomitant]

REACTIONS (4)
  - Bronchospasm [None]
  - Agitation [None]
  - Dyspnoea [None]
  - Hyperhidrosis [None]
